FAERS Safety Report 24734517 (Version 1)
Quarter: 2024Q4

REPORT INFORMATION
  Report Type: Spontaneous
  Country: US (occurrence: US)
  Receive Date: 20241214
  Receipt Date: 20241214
  Transmission Date: 20250115
  Serious: Yes (Death, Life-Threatening, Hospitalization)
  Sender: AMGEN
  Company Number: US-AMGEN-USASP2024241777

PATIENT
  Age: 49 Year
  Sex: Male

DRUGS (3)
  1. PREDNISONE [Suspect]
     Active Substance: PREDNISONE
     Indication: Colitis
     Dosage: UNK (TAPER)
     Route: 065
  2. IPILIMUMAB [Concomitant]
     Active Substance: IPILIMUMAB
     Indication: Metastatic neoplasm
     Route: 065
  3. NIVOLUMAB [Concomitant]
     Active Substance: NIVOLUMAB
     Indication: Metastatic neoplasm
     Route: 065

REACTIONS (8)
  - Acute coronary syndrome [Fatal]
  - Arteriosclerosis coronary artery [Fatal]
  - Metastatic malignant melanoma [Fatal]
  - Tumour embolism [Fatal]
  - Distributive shock [Unknown]
  - Acute myocardial infarction [Unknown]
  - Sepsis [Unknown]
  - Ventricular hypokinesia [Recovered/Resolved]
